FAERS Safety Report 22362735 (Version 1)
Quarter: 2023Q2

REPORT INFORMATION
  Report Type: Other
  Country: US (occurrence: None)
  Receive Date: 20230524
  Receipt Date: 20230524
  Transmission Date: 20230722
  Serious: Yes (Other)
  Sender: FDA-Public Use
  Company Number: US-ROCHE-3353989

PATIENT
  Age: 51 Year
  Sex: Female
  Weight: 113.5 kg

DRUGS (1)
  1. OCREVUS [Suspect]
     Active Substance: OCRELIZUMAB
     Indication: Relapsing-remitting multiple sclerosis
     Dosage: YES
     Route: 042
     Dates: start: 202209

REACTIONS (3)
  - Urinary tract infection [Recovered/Resolved]
  - Renal pain [Recovered/Resolved]
  - Pancreatic cyst [Not Recovered/Not Resolved]

NARRATIVE: CASE EVENT DATE: 20230328
